FAERS Safety Report 8561774-1 (Version None)
Quarter: 2012Q3

REPORT INFORMATION
  Report Type: 
  Country: None (occurrence: None)
  Receive Date: 20120802
  Receipt Date: 20120724
  Transmission Date: 20120928
  Serious: Yes (Hospitalization)
  Sender: FDA-Public Use
  Company Number: KR-FRI-1000037521

PATIENT
  Age: 60 Year
  Sex: Male

DRUGS (3)
  1. ROFLUMILAST [Suspect]
     Dates: end: 20120101
  2. WARFARIN [Concomitant]
  3. ALL OTHER THERAPEUTIC PRODUCTS [Concomitant]
     Indication: DIABETES MELLITUS

REACTIONS (1)
  - SHOCK HYPOGLYCAEMIC [None]
